FAERS Safety Report 14536794 (Version 1)
Quarter: 2018Q1

REPORT INFORMATION
  Report Type: Spontaneous
  Country: JP (occurrence: JP)
  Receive Date: 20180215
  Receipt Date: 20180215
  Transmission Date: 20180509
  Serious: Yes (Other)
  Sender: FDA-Public Use
  Company Number: JP-MYLANLABS-2018M1010596

PATIENT
  Age: 12 Year
  Sex: Female

DRUGS (9)
  1. TRIMETHOPRIM SULFAMETHOXAZOLE [Concomitant]
     Active Substance: SULFAMETHOXAZOLE\TRIMETHOPRIM
     Indication: PROPHYLACTIC CHEMOTHERAPY
     Route: 065
  2. TRETINOIN. [Suspect]
     Active Substance: TRETINOIN
     Indication: ACUTE PROMYELOCYTIC LEUKAEMIA
     Route: 065
  3. TRETINOIN. [Suspect]
     Active Substance: TRETINOIN
     Dosage: ON DAYS 4-10
     Route: 048
  4. CYTARABINE. [Concomitant]
     Active Substance: CYTARABINE
     Indication: ACUTE PROMYELOCYTIC LEUKAEMIA
     Dosage: ON DAYS 1-3
     Route: 042
  5. CYTARABINE. [Concomitant]
     Active Substance: CYTARABINE
     Dosage: ON DAY 1 AS A PART OF TRIPLE INTRATHECAL THERAPY, ADMINISTERED ALONG WITH METHOTREXATE AND HYDROC...
     Route: 037
  6. MITOXANTRONE [Concomitant]
     Active Substance: MITOXANTRONE HYDROCHLORIDE
     Indication: ACUTE PROMYELOCYTIC LEUKAEMIA
     Dosage: ON DAY 1
     Route: 042
  7. HYDROCORTISONE. [Concomitant]
     Active Substance: HYDROCORTISONE
     Indication: ACUTE PROMYELOCYTIC LEUKAEMIA
     Dosage: ON DAY 1
     Route: 037
  8. FLUCONAZOLE. [Concomitant]
     Active Substance: FLUCONAZOLE
     Indication: PROPHYLACTIC CHEMOTHERAPY
     Route: 065
  9. METHOTREXATE. [Concomitant]
     Active Substance: METHOTREXATE
     Indication: ACUTE PROMYELOCYTIC LEUKAEMIA
     Dosage: ON DAY 1
     Route: 037

REACTIONS (2)
  - Intracranial pressure increased [Recovered/Resolved]
  - Deafness neurosensory [Recovered/Resolved]
